FAERS Safety Report 6344792-3 (Version None)
Quarter: 2009Q3

REPORT INFORMATION
  Report Type: 
  Country: None (occurrence: None)
  Receive Date: 20090904
  Receipt Date: 20090819
  Transmission Date: 20100115
  Serious: Yes (Hospitalization, Other)
  Sender: FDA-Public Use
  Company Number: 2008S1009172

PATIENT
  Age: 72 Year
  Sex: Female
  Weight: 85.2762 kg

DRUGS (8)
  1. PHOSPHOSODA FLAVOR NOT SPECIFIED [Suspect]
     Indication: COLONOSCOPY
     Dosage: PO
     Route: 048
     Dates: start: 20061102, end: 20061102
  2. FELODIPINE [Concomitant]
  3. ASPIRIN [Concomitant]
  4. NITROGLYCERIN [Concomitant]
  5. ZOCOR [Concomitant]
  6. FLUOXETINE [Concomitant]
  7. VERSED [Concomitant]
  8. FENTANYL [Concomitant]

REACTIONS (4)
  - ANAEMIA [None]
  - DIARRHOEA [None]
  - RENAL FAILURE ACUTE [None]
  - RENAL FAILURE CHRONIC [None]
